FAERS Safety Report 14713716 (Version 1)
Quarter: 2018Q2

REPORT INFORMATION
  Report Type: Spontaneous
  Country: FR (occurrence: FR)
  Receive Date: 20180404
  Receipt Date: 20180404
  Transmission Date: 20180711
  Serious: Yes (Other)
  Sender: FDA-Public Use
  Company Number: FR-CONCORDIA PHARMACEUTICALS INC.-E2B_00010843

PATIENT
  Sex: Female
  Weight: 2.99 kg

DRUGS (2)
  1. ZONEGRAN [Suspect]
     Active Substance: ZONISAMIDE
     Dosage: UNKNOWN
     Route: 064
  2. TEGRETOL [Suspect]
     Active Substance: CARBAMAZEPINE
     Dosage: UNKNOWN
     Route: 064

REACTIONS (3)
  - Muscle hernia [Not Recovered/Not Resolved]
  - Lipoma [Not Recovered/Not Resolved]
  - Foetal exposure during pregnancy [Not Recovered/Not Resolved]

NARRATIVE: CASE EVENT DATE: 20180225
